FAERS Safety Report 13165076 (Version 2)
Quarter: 2017Q1

REPORT INFORMATION
  Report Type: Spontaneous
  Country: BR (occurrence: BR)
  Receive Date: 20170130
  Receipt Date: 20170309
  Transmission Date: 20170428
  Serious: Yes (Hospitalization)
  Sender: FDA-Public Use
  Company Number: BR-ASTRAZENECA-2017SE09101

PATIENT
  Age: 29977 Day
  Sex: Male
  Weight: 58 kg

DRUGS (8)
  1. INFANTIL [Concomitant]
     Route: 048
     Dates: start: 20161102, end: 20161117
  2. PANTOZOL [Concomitant]
     Active Substance: PANTOPRAZOLE SODIUM
     Route: 042
     Dates: start: 20161101, end: 20161116
  3. CLEXANE [Concomitant]
     Active Substance: ENOXAPARIN SODIUM
     Route: 058
     Dates: start: 20161101, end: 20161109
  4. ENDOFOLIN [Concomitant]
     Active Substance: FOLIC ACID
     Route: 048
     Dates: start: 20161103, end: 20161116
  5. SEROQUEL [Suspect]
     Active Substance: QUETIAPINE FUMARATE
     Route: 048
     Dates: end: 201611
  6. NOVALGINA [Concomitant]
     Active Substance: METAMIZOLE SODIUM
     Dosage: 4 G/DAY
     Route: 042
     Dates: start: 20161103, end: 20161112
  7. RIVOTRIL [Concomitant]
     Active Substance: CLONAZEPAM
     Dosage: 2.5 MG/ML, 5 DROPS
     Route: 048
     Dates: start: 20161103, end: 20161103
  8. CRESTOR [Suspect]
     Active Substance: ROSUVASTATIN CALCIUM
     Indication: HYPERTENSION
     Route: 048

REACTIONS (10)
  - Tremor [Recovered/Resolved]
  - Psychomotor hyperactivity [Recovered/Resolved]
  - Pyrexia [Recovered/Resolved]
  - Lung infection [Unknown]
  - Haematocrit decreased [Unknown]
  - Off label use [Unknown]
  - Haemoglobin decreased [Unknown]
  - Dehydration [Recovered/Resolved]
  - Red blood cell count decreased [Unknown]
  - Product use issue [Unknown]

NARRATIVE: CASE EVENT DATE: 20161031
